FAERS Safety Report 17226095 (Version 3)
Quarter: 2020Q2

REPORT INFORMATION
  Report Type: Report from Study
  Country: CA (occurrence: CA)
  Receive Date: 20200102
  Receipt Date: 20200617
  Transmission Date: 20200713
  Serious: Yes (Hospitalization, Other)
  Sender: FDA-Public Use
  Company Number: CA-JNJFOC-20200100425

PATIENT
  Age: 40 Year
  Sex: Male
  Weight: 72.57 kg

DRUGS (2)
  1. STELARA [Suspect]
     Active Substance: USTEKINUMAB
     Dosage: ON 05-JUN-2020 THE PATIENT RECEIVED 2ND INFUSION WITH THE DOSE OF 390 MG.
     Route: 042
     Dates: start: 20191111
  2. STELARA [Suspect]
     Active Substance: USTEKINUMAB
     Indication: CROHN^S DISEASE
     Route: 058
     Dates: start: 20191104, end: 20191110

REACTIONS (4)
  - Abscess [Recovering/Resolving]
  - Intestinal resection [Recovering/Resolving]
  - Diarrhoea [Unknown]
  - Abdominal pain [Unknown]

NARRATIVE: CASE EVENT DATE: 20191230
